FAERS Safety Report 9030677 (Version 1)
Quarter: 2013Q1

REPORT INFORMATION
  Report Type: Spontaneous
  Country: FR (occurrence: FR)
  Receive Date: 20130123
  Receipt Date: 20130123
  Transmission Date: 20140127
  Serious: Yes (Disabling, Other)
  Sender: FDA-Public Use
  Company Number: FR-ROCHE-1140050

PATIENT
  Sex: Male
  Weight: 60 kg

DRUGS (2)
  1. ZELBORAF [Suspect]
     Indication: MALIGNANT MELANOMA
     Route: 065
     Dates: start: 20120717, end: 20121107
  2. ZELBORAF [Suspect]
     Route: 065

REACTIONS (2)
  - Blood creatinine increased [Recovering/Resolving]
  - Uveitis [Unknown]
